FAERS Safety Report 6824144-X (Version None)
Quarter: 2010Q3

REPORT INFORMATION
  Report Type: 
  Country: None (occurrence: None)
  Receive Date: 20100708
  Receipt Date: 20061003
  Transmission Date: 20110219
  Serious: No
  Sender: FDA-Public Use
  Company Number: US-PFIZER INC-2006122038

PATIENT
  Sex: Male
  Weight: 66.68 kg

DRUGS (11)
  1. CHANTIX [Suspect]
     Indication: SMOKING CESSATION THERAPY
     Dates: start: 20061001
  2. HYDROCHLOROTHIAZIDE [Concomitant]
     Indication: BLOOD PRESSURE MANAGEMENT
  3. PLAVIX [Concomitant]
  4. LIPITOR [Concomitant]
  5. TAMSULOSIN HCL [Concomitant]
  6. FLOVENT [Concomitant]
  7. ALBUTEROL [Concomitant]
  8. TIOTROPIUM BROMIDE [Concomitant]
  9. SEREVENT [Concomitant]
  10. PREVACID [Concomitant]
  11. METFORMIN HCL [Concomitant]
     Indication: DIABETES MELLITUS

REACTIONS (1)
  - BLOOD PRESSURE INCREASED [None]
